FAERS Safety Report 24224224 (Version 1)
Quarter: 2024Q3

REPORT INFORMATION
  Report Type: Spontaneous
  Country: US (occurrence: None)
  Receive Date: 20240818
  Receipt Date: 20240818
  Transmission Date: 20241017
  Serious: Yes (unspecified)
  Sender: Public
  Company Number: None

PATIENT
  Age: 80 Year
  Sex: Male
  Weight: 83.25 kg

DRUGS (4)
  1. DORZOLAMIDE\TIMOLOL [Suspect]
     Active Substance: DORZOLAMIDE\TIMOLOL
     Indication: Ocular discomfort
     Dosage: 1 DROP EVERY 12 HOURS OPHTHALMIC?
     Route: 047
     Dates: start: 20210317, end: 20240818
  2. Latanaprost drops [Concomitant]
  3. AREDS eye vitamin [Concomitant]
  4. VITAMIN D3 [Concomitant]
     Active Substance: CHOLECALCIFEROL

REACTIONS (2)
  - Eye irritation [None]
  - Vision blurred [None]

NARRATIVE: CASE EVENT DATE: 20240703
